FAERS Safety Report 12756010 (Version 2)
Quarter: 2016Q3

REPORT INFORMATION
  Report Type: Spontaneous
  Country: GR (occurrence: GR)
  Receive Date: 20160916
  Receipt Date: 20160928
  Transmission Date: 20161109
  Serious: Yes (Death, Other)
  Sender: FDA-Public Use
  Company Number: GR-JNJFOC-20160913515

PATIENT

DRUGS (2)
  1. DOXORUBICIN HYDROCHLORIDE. [Suspect]
     Active Substance: DOXORUBICIN HYDROCHLORIDE
     Indication: HEPATOCELLULAR CARCINOMA
     Dosage: DOSE: MAXIMUM INTENDED DOSE OF??100 MG AND 150 MG OF DOXORUBICIN PER 3 ML VIAL OF TANDEM
     Route: 065
  2. TANDEM [Suspect]
     Active Substance: FERROUS ASPARTO GLYCINATE\FERROUS FUMARATE
     Indication: HEPATOCELLULAR CARCINOMA
     Dosage: DOSE: 33.3 MG/ML AND 50 MG/ML OF BEADS
     Route: 065

REACTIONS (15)
  - Pain [Unknown]
  - Tumour rupture [Fatal]
  - Nausea [Unknown]
  - Ascites [Unknown]
  - Pyrexia [Unknown]
  - Off label use [Unknown]
  - Vomiting [Unknown]
  - Hepatic failure [Unknown]
  - Pancreatitis [Unknown]
  - Alopecia [Unknown]
  - Biliary dilatation [Unknown]
  - Hepatic enzyme increased [Unknown]
  - Product use issue [Unknown]
  - Encephalopathy [Unknown]
  - Post embolisation syndrome [Unknown]
